FAERS Safety Report 9355227 (Version 1)
Quarter: 2013Q2

REPORT INFORMATION
  Report Type: Spontaneous
  Country: US (occurrence: US)
  Receive Date: 20130619
  Receipt Date: 20130619
  Transmission Date: 20140414
  Serious: No
  Sender: FDA-Public Use
  Company Number: US-PFIZER INC-2013180074

PATIENT
  Age: 72 Year
  Sex: Female
  Weight: 68.03 kg

DRUGS (1)
  1. LEVOXYL [Suspect]
     Indication: HYPOTHYROIDISM
     Dosage: UNK
     Route: 048

REACTIONS (2)
  - Thyroid function test abnormal [Unknown]
  - Drug effect delayed [Unknown]
